FAERS Safety Report 6071301-9 (Version None)
Quarter: 2009Q1

REPORT INFORMATION
  Report Type: 
  Country: None (occurrence: None)
  Receive Date: 20090205
  Receipt Date: 20090122
  Transmission Date: 20090719
  Serious: Yes (Other)
  Sender: FDA-Public Use
  Company Number: 2009AL000402

PATIENT
  Age: 62 Year
  Sex: Male

DRUGS (1)
  1. METFORMIN HCL [Suspect]
     Indication: DIABETES MELLITUS

REACTIONS (3)
  - LACTIC ACIDOSIS [None]
  - PANCREATITIS ACUTE [None]
  - PSEUDOCYST [None]
